FAERS Safety Report 7216842-3 (Version None)
Quarter: 2011Q1

REPORT INFORMATION
  Report Type: 
  Country: None (occurrence: None)
  Receive Date: 20110110
  Receipt Date: 20101230
  Transmission Date: 20110831
  Serious: No
  Sender: FDA-Public Use
  Company Number: US-BIOGENIDEC-2011BI000692

PATIENT
  Age: 65 Year
  Sex: Male

DRUGS (1)
  1. AVONEX [Suspect]
     Indication: MULTIPLE SCLEROSIS
     Route: 030
     Dates: start: 20100811

REACTIONS (5)
  - CHILLS [None]
  - PYREXIA [None]
  - DECREASED APPETITE [None]
  - INFLUENZA LIKE ILLNESS [None]
  - DIARRHOEA [None]
